FAERS Safety Report 7756896-9 (Version None)
Quarter: 2011Q3

REPORT INFORMATION
  Report Type: 
  Country: None (occurrence: None)
  Receive Date: 20110916
  Receipt Date: 20110909
  Transmission Date: 20111222
  Serious: Yes (Death, Hospitalization)
  Sender: FDA-Public Use
  Company Number: US-GLAXOSMITHKLINE-A0930398A

PATIENT
  Age: 83 Year
  Sex: Female

DRUGS (2)
  1. COREG [Suspect]
     Indication: CARDIAC FAILURE CONGESTIVE
     Dosage: 12.5MG TWICE PER DAY
     Route: 048
     Dates: start: 20081201, end: 20101206
  2. COUMADIN [Concomitant]

REACTIONS (2)
  - SEPTIC SHOCK [None]
  - HAEMORRHAGE [None]
